FAERS Safety Report 5971496-9 (Version None)
Quarter: 2008Q4

REPORT INFORMATION
  Report Type: 
  Country: None (occurrence: None)
  Receive Date: 20081201
  Receipt Date: 20081119
  Transmission Date: 20090506
  Serious: Yes (Hospitalization, Other)
  Sender: FDA-Public Use
  Company Number: US-WYE-H06911908

PATIENT
  Age: 69 Year
  Sex: Female

DRUGS (2)
  1. TORISEL [Suspect]
     Indication: RENAL CELL CARCINOMA
     Dosage: 25 MG OVER 30 MINUTES ON DAYS 1, 8, 15 AND 22
     Route: 042
     Dates: start: 20080911, end: 20081016
  2. BEVACIZUMAB [Suspect]
     Indication: RENAL CELL CARCINOMA
     Dosage: 10 MG/KG OVER 30-90 MINUTES ON DAY 1 AND 15
     Route: 042
     Dates: start: 20080911, end: 20080925

REACTIONS (6)
  - ATRIAL TACHYCARDIA [None]
  - HEADACHE [None]
  - LEFT VENTRICULAR DYSFUNCTION [None]
  - NAUSEA [None]
  - PLEURAL EFFUSION [None]
  - VOMITING [None]
